FAERS Safety Report 19483620 (Version 2)
Quarter: 2022Q1

REPORT INFORMATION
  Report Type: Spontaneous
  Country: US (occurrence: None)
  Receive Date: 20210701
  Receipt Date: 20220111
  Transmission Date: 20220424
  Serious: Yes (Other)
  Sender: FDA-Public Use
  Company Number: 2021A557697

PATIENT
  Age: 82 Year
  Sex: Female
  Weight: 81.6 kg

DRUGS (42)
  1. PRILOSEC [Suspect]
     Active Substance: OMEPRAZOLE MAGNESIUM
     Indication: Gastrooesophageal reflux disease
     Route: 048
     Dates: start: 1989, end: 2016
  2. PRILOSEC [Suspect]
     Active Substance: OMEPRAZOLE MAGNESIUM
     Indication: Gastrooesophageal reflux disease
     Route: 048
     Dates: start: 1989, end: 2016
  3. PRILOSEC [Suspect]
     Active Substance: OMEPRAZOLE MAGNESIUM
     Indication: Gastrooesophageal reflux disease
     Dosage: GENERIC
     Route: 065
     Dates: start: 2007
  4. PRILOSEC [Suspect]
     Active Substance: OMEPRAZOLE MAGNESIUM
     Indication: Gastrooesophageal reflux disease
     Dosage: GENERIC
     Route: 065
     Dates: start: 2007
  5. PREVACID [Suspect]
     Active Substance: LANSOPRAZOLE
     Indication: Gastrooesophageal reflux disease
     Route: 065
     Dates: start: 1989, end: 2016
  6. PREVACID [Suspect]
     Active Substance: LANSOPRAZOLE
     Indication: Gastrooesophageal reflux disease
     Route: 065
     Dates: start: 1989, end: 2016
  7. PREVACID [Suspect]
     Active Substance: LANSOPRAZOLE
     Indication: Gastrooesophageal reflux disease
     Route: 065
     Dates: start: 1995, end: 2016
  8. PREVACID [Suspect]
     Active Substance: LANSOPRAZOLE
     Indication: Gastrooesophageal reflux disease
     Route: 065
     Dates: start: 1995, end: 2016
  9. PROTONIX [Suspect]
     Active Substance: PANTOPRAZOLE SODIUM
     Indication: Gastrooesophageal reflux disease
     Route: 065
     Dates: start: 1989, end: 2016
  10. PROTONIX [Suspect]
     Active Substance: PANTOPRAZOLE SODIUM
     Indication: Gastrooesophageal reflux disease
     Route: 065
     Dates: start: 1989, end: 2016
  11. PROTONIX [Suspect]
     Active Substance: PANTOPRAZOLE SODIUM
     Indication: Gastrooesophageal reflux disease
     Dosage: GENERIC
     Route: 065
     Dates: start: 2016
  12. PROTONIX [Suspect]
     Active Substance: PANTOPRAZOLE SODIUM
     Indication: Gastrooesophageal reflux disease
     Dosage: GENERIC
     Route: 065
     Dates: start: 2016
  13. PROTONIX [Suspect]
     Active Substance: PANTOPRAZOLE SODIUM
     Indication: Gastrooesophageal reflux disease
     Route: 065
     Dates: start: 2000
  14. PROTONIX [Suspect]
     Active Substance: PANTOPRAZOLE SODIUM
     Indication: Gastrooesophageal reflux disease
     Route: 065
     Dates: start: 2000
  15. DOXYCYCLINE [Concomitant]
     Active Substance: DOXYCYCLINE
     Indication: Infection
     Dates: start: 20090324, end: 20190219
  16. LEVOFLOXACIN [Concomitant]
     Active Substance: LEVOFLOXACIN
     Indication: Infection
     Dates: start: 20170602, end: 20171021
  17. MOXIFLOXACIN [Concomitant]
     Active Substance: MOXIFLOXACIN
     Indication: Infection
     Dates: start: 20161213
  18. HYDRALAZINE [Concomitant]
     Active Substance: HYDRALAZINE HYDROCHLORIDE
     Indication: Hypertension
     Dates: start: 20180327, end: 20180426
  19. ATORVASTATIN [Concomitant]
     Active Substance: ATORVASTATIN
     Indication: Hyperlipidaemia
     Dates: start: 20160915, end: 20170523
  20. FUROSEMIDE [Concomitant]
     Active Substance: FUROSEMIDE
     Indication: Hypertension
     Dates: start: 20161116
  21. CLOPIDOGREL [Concomitant]
     Active Substance: CLOPIDOGREL BISULFATE
     Indication: Anticoagulant therapy
     Dates: start: 20160114, end: 20161014
  22. LOVASTATIN [Concomitant]
     Active Substance: LOVASTATIN
     Indication: Hyperlipidaemia
     Dates: start: 20060207, end: 20061107
  23. AZITHROMYCIN [Concomitant]
     Active Substance: AZITHROMYCIN
     Indication: Infection
     Dates: start: 20070223, end: 20070228
  24. OSELTAMIVIR [Concomitant]
     Active Substance: OSELTAMIVIR
  25. IPRATROPIUM [Concomitant]
     Active Substance: IPRATROPIUM
  26. GABAPENTIN [Concomitant]
     Active Substance: GABAPENTIN
  27. MIRTAZAPINE [Concomitant]
     Active Substance: MIRTAZAPINE
  28. LABETALOL [Concomitant]
     Active Substance: LABETALOL\LABETALOL HYDROCHLORIDE
  29. CEPHALEXIN [Concomitant]
     Active Substance: CEPHALEXIN
  30. SERTRALINE [Concomitant]
     Active Substance: SERTRALINE HYDROCHLORIDE
  31. AMLODIPINE [Concomitant]
     Active Substance: AMLODIPINE BESYLATE
  32. POTASSIUM CHLORIDE [Concomitant]
     Active Substance: POTASSIUM CHLORIDE
  33. CLINDAMYCIN [Concomitant]
     Active Substance: CLINDAMYCIN
  34. PROAIR HFA [Concomitant]
     Active Substance: ALBUTEROL SULFATE
  35. LEVOTHYROIXINE [Concomitant]
  36. MAGNESIUM OXIDE [Concomitant]
     Active Substance: MAGNESIUM OXIDE
  37. FLUCELVAX NOS [Concomitant]
     Active Substance: INFLUENZA A VIRUS A/BRISBANE/10/2010 (H1N1) ANTIGEN (MDCK CELL DERIVED, PROPIOLACTONE INACTIVATED)\I
  38. FLUVIRIN NOS [Concomitant]
     Active Substance: INFLUENZA VIRUS VACCINE
  39. BREO ELLIPTA [Concomitant]
     Active Substance: FLUTICASONE FUROATE\VILANTEROL TRIFENATATE
  40. CALCITRIOL [Concomitant]
     Active Substance: CALCITRIOL
  41. ASPIRIN [Concomitant]
     Active Substance: ASPIRIN
  42. ROSUVASTATIN [Concomitant]
     Active Substance: ROSUVASTATIN

REACTIONS (5)
  - Acute kidney injury [Not Recovered/Not Resolved]
  - Chronic kidney disease [Not Recovered/Not Resolved]
  - Renal failure [Unknown]
  - Hyperparathyroidism secondary [Unknown]
  - Gastrooesophageal reflux disease [Not Recovered/Not Resolved]

NARRATIVE: CASE EVENT DATE: 20160101
